FAERS Safety Report 11439083 (Version 1)
Quarter: 2015Q3

REPORT INFORMATION
  Report Type: Spontaneous
  Country: US (occurrence: US)
  Receive Date: 20150901
  Receipt Date: 20150901
  Transmission Date: 20151125
  Serious: No
  Sender: FDA-Public Use
  Company Number: US-ROCHE-1018336

PATIENT
  Age: 65 Year
  Sex: Male
  Weight: 73.55 kg

DRUGS (6)
  1. PEGASYS [Suspect]
     Active Substance: PEGINTERFERON ALFA-2A
     Indication: HEPATITIS C
     Route: 065
     Dates: start: 20111104
  2. PEGASYS [Suspect]
     Active Substance: PEGINTERFERON ALFA-2A
     Route: 058
     Dates: start: 20120728
  3. RIBAVIRIN. [Suspect]
     Active Substance: RIBAVIRIN
     Indication: HEPATITIS C
     Dosage: DIVIDED DOSES
     Route: 065
     Dates: start: 20111104
  4. RIBAVIRIN. [Suspect]
     Active Substance: RIBAVIRIN
     Dosage: DIVIDED DOSE
     Route: 065
     Dates: start: 20120728
  5. RIBAVIRIN. [Suspect]
     Active Substance: RIBAVIRIN
     Dosage: DIVIDED DOSE
     Route: 065
  6. PEGASYS [Suspect]
     Active Substance: PEGINTERFERON ALFA-2A
     Route: 058
     Dates: start: 20120809

REACTIONS (8)
  - Viral load undetectable [Unknown]
  - Fatigue [Unknown]
  - Heart rate increased [Unknown]
  - Influenza like illness [Unknown]
  - Anaemia [Unknown]
  - Weight decreased [Unknown]
  - Hypertension [Unknown]
  - Adverse reaction [Recovering/Resolving]

NARRATIVE: CASE EVENT DATE: 20120809
